FAERS Safety Report 6613308-6 (Version None)
Quarter: 2010Q1

REPORT INFORMATION
  Report Type: 
  Country: None (occurrence: None)
  Receive Date: 20100304
  Receipt Date: 20100222
  Transmission Date: 20100710
  Serious: Yes (Hospitalization, Other)
  Sender: FDA-Public Use
  Company Number: PHFR2008GB00939

PATIENT
  Sex: Female

DRUGS (10)
  1. CLOZARIL [Suspect]
     Indication: SCHIZOPHRENIA
     Dosage: UNK
     Route: 048
     Dates: start: 19960326
  2. CLOZARIL [Suspect]
     Dosage: 150 MG IN MORNING AND 350 MG AT NIGHT
  3. OXYBUTYNIN [Concomitant]
     Dosage: 2.5 MG, BID
  4. SENNA [Concomitant]
     Dosage: 15 MG, UNK
  5. ESCITALOPRAM [Concomitant]
     Dosage: 10 MG, UNK
  6. FLUDROCORTISONE [Concomitant]
     Dosage: 200 UG, UNK
  7. PARACETAMOL [Concomitant]
     Dosage: 1 G, QD
  8. CODEINE SULFATE [Concomitant]
     Dosage: 15 MG, QD
  9. OLIVE OIL [Concomitant]
     Dosage: 1 DROP PER DAY PER EAR
  10. DOCUSATE SODIUM [Concomitant]
     Dosage: 200 MG, BID

REACTIONS (11)
  - ARTHROPATHY [None]
  - ASTHENIA [None]
  - DEPRESSION [None]
  - DEVICE DISLOCATION [None]
  - ELECTROCARDIOGRAM QT PROLONGED [None]
  - FALL [None]
  - HALLUCINATION, AUDITORY [None]
  - HIP ARTHROPLASTY [None]
  - MOBILITY DECREASED [None]
  - TACHYCARDIA [None]
  - URINARY TRACT DISORDER [None]
